FAERS Safety Report 8584544-7 (Version None)
Quarter: 2012Q3

REPORT INFORMATION
  Report Type: 
  Country: None (occurrence: None)
  Receive Date: 20120810
  Receipt Date: 20120730
  Transmission Date: 20120928
  Serious: Yes (Hospitalization, Other)
  Sender: FDA-Public Use
  Company Number: US-PAR PHARMACEUTICAL, INC-2012SCPR004535

PATIENT

DRUGS (5)
  1. DOXYCYCLINE HCL [Suspect]
     Indication: SCLEROTHERAPY
     Dosage: 300 MG, UNKNOWN
     Route: 026
  2. DOXYCYCLINE HCL [Suspect]
     Dosage: 255 MG, UNKNOWN
     Route: 026
  3. DOXYCYCLINE HCL [Suspect]
     Dosage: 150 MG, UNK
     Route: 026
  4. DOXYCYCLINE HCL [Suspect]
     Dosage: 150 MG, UNKNOWN
     Route: 026
  5. DOXYCYCLINE HCL [Suspect]
     Dosage: 90 MG, UNKNOWN
     Route: 026

REACTIONS (3)
  - METABOLIC ACIDOSIS [None]
  - HAEMOLYTIC ANAEMIA [None]
  - HYPOGLYCAEMIA [None]
